FAERS Safety Report 5812759-7 (Version None)
Quarter: 2008Q3

REPORT INFORMATION
  Report Type: 
  Country: None (occurrence: None)
  Receive Date: 20080714
  Receipt Date: 20080714
  Transmission Date: 20090109
  Serious: Yes (Death, Hospitalization)
  Sender: FDA-Public Use
  Company Number: None

PATIENT
  Sex: Female
  Weight: 101 kg

DRUGS (3)
  1. CYTARABINE [Suspect]
     Dosage: 1540 MG
     Dates: end: 20080625
  2. DAUNORUBICIN HCL [Suspect]
     Dosage: 591 MG
     Dates: end: 20080621
  3. ETOPOSIDE [Suspect]
     Dosage: 660 MG
     Dates: end: 20080621

REACTIONS (3)
  - DYSPNOEA [None]
  - HYPOXIA [None]
  - LUNG INFILTRATION [None]
